FAERS Safety Report 9290233 (Version 1)
Quarter: 2013Q2

REPORT INFORMATION
  Report Type: Spontaneous
  Country: US (occurrence: US)
  Receive Date: 20130515
  Receipt Date: 20130515
  Transmission Date: 20140414
  Serious: Yes (Other)
  Sender: FDA-Public Use
  Company Number: US-PFIZER INC-2013145528

PATIENT
  Age: 50 Year
  Sex: Female
  Weight: 57.1 kg

DRUGS (6)
  1. LEVOXYL [Suspect]
     Indication: HYPOTHYROIDISM
     Dosage: UNK
     Route: 048
     Dates: start: 2008
  2. LEVOXYL [Suspect]
     Indication: AUTOIMMUNE THYROIDITIS
     Dosage: 100 UG, 1X/DAY
  3. ESTROGENS [Concomitant]
     Indication: PREMATURE MENOPAUSE
     Dosage: EVERY TWO MONTHS
  4. FEMRING [Concomitant]
     Indication: PREMATURE MENOPAUSE
     Dosage: 0.1 MG, EVERY 3 MONTHS
     Route: 067
  5. PROGESTERONE [Concomitant]
     Indication: PREMATURE MENOPAUSE
     Dosage: UNK, EVERY THREE MONTHS
  6. MULTIVITAMINS [Concomitant]
     Dosage: UNK

REACTIONS (9)
  - Choking [Unknown]
  - Thyroid function test abnormal [Unknown]
  - Peripheral coldness [Unknown]
  - Palpitations [Unknown]
  - Malabsorption [Unknown]
  - Abdominal pain upper [Unknown]
  - Throat irritation [Unknown]
  - Tablet physical issue [Unknown]
  - Dysphagia [Unknown]
